FAERS Safety Report 24076390 (Version 1)
Quarter: 2024Q3

REPORT INFORMATION
  Report Type: Spontaneous
  Country: CN (occurrence: CN)
  Receive Date: 20240711
  Receipt Date: 20240711
  Transmission Date: 20241016
  Serious: Yes (Life-Threatening, Hospitalization, Other)
  Sender: AUROBINDO
  Company Number: CN-MLMSERVICE-20240625-PI111713-00295-1

PATIENT
  Age: 17 Year
  Sex: Female

DRUGS (3)
  1. SERTRALINE HYDROCHLORIDE [Suspect]
     Active Substance: SERTRALINE HYDROCHLORIDE
     Indication: Mood swings
     Dosage: 20 DOSAGE FORM TOTAL
     Route: 048
  2. VALPROATE SODIUM [Concomitant]
     Active Substance: VALPROATE SODIUM
     Indication: Bipolar disorder
     Dosage: UNK
     Route: 065
  3. QUETIAPINE FUMARATE [Concomitant]
     Active Substance: QUETIAPINE FUMARATE
     Indication: Bipolar disorder
     Dosage: UNK
     Route: 065

REACTIONS (6)
  - Coma [Recovered/Resolved]
  - Seizure [Recovered/Resolved]
  - Diabetes insipidus [Recovered/Resolved]
  - Myocardial injury [Recovered/Resolved]
  - Vomiting [Recovered/Resolved]
  - Intentional overdose [Recovered/Resolved]
